FAERS Safety Report 6544718-3 (Version None)
Quarter: 2010Q1

REPORT INFORMATION
  Report Type: 
  Country: None (occurrence: None)
  Receive Date: 20100121
  Receipt Date: 20100114
  Transmission Date: 20100710
  Serious: Yes (Other)
  Sender: FDA-Public Use
  Company Number: PHEH2007US03628

PATIENT
  Sex: Female
  Weight: 89.796 kg

DRUGS (12)
  1. ESTRADERM [Suspect]
     Indication: MENOPAUSAL SYMPTOMS
     Dosage: UNK BIW
     Route: 061
     Dates: start: 19970920, end: 19990101
  2. PREMPRO [Suspect]
     Indication: MENOPAUSAL SYMPTOMS
     Dosage: .625/2.5MG QD
     Route: 048
     Dates: start: 19990101, end: 20010401
  3. ADRIAMYCIN PFS [Concomitant]
     Dates: start: 20010101
  4. CYTOXAN [Concomitant]
     Dates: start: 20010501
  5. TAMOXIFEN CITRATE [Concomitant]
     Dosage: 10MG BID
     Dates: start: 20010101
  6. LOPRESSOR [Concomitant]
     Indication: HYPERTENSION
     Dosage: UNK, UNK
     Dates: start: 20020129, end: 20060101
  7. PROZAC [Concomitant]
     Indication: DEPRESSION
     Dosage: UNK, UNK
     Dates: start: 20020129
  8. CELEXA [Concomitant]
     Indication: SOCIAL PHOBIA
  9. FEMARA [Concomitant]
     Dates: start: 20040901
  10. VICODIN [Concomitant]
     Dates: start: 20031209
  11. VICODIN [Concomitant]
     Dates: start: 20031209
  12. MAXZIDE [Concomitant]
     Dosage: UNK, UNK
     Dates: start: 20010501

REACTIONS (24)
  - ARRHYTHMIA [None]
  - BACK PAIN [None]
  - BREAST CANCER [None]
  - BREAST DISORDER [None]
  - BREAST RECONSTRUCTION [None]
  - CARDIAC DISORDER [None]
  - CARDIAC VALVE DISEASE [None]
  - DEPRESSION [None]
  - FACE INJURY [None]
  - FALL [None]
  - FIBROSIS [None]
  - HOT FLUSH [None]
  - HYPERTENSION [None]
  - JOINT INJURY [None]
  - LEUKOPENIA [None]
  - LYMPHADENECTOMY [None]
  - LYMPHOEDEMA [None]
  - MAMMOPLASTY [None]
  - METASTATIC NEOPLASM [None]
  - MODIFIED RADICAL MASTECTOMY [None]
  - NECK PAIN [None]
  - PALPITATIONS [None]
  - RADIOTHERAPY [None]
  - SPLINT APPLICATION [None]
